FAERS Safety Report 10003629 (Version 1)
Quarter: 2014Q1

REPORT INFORMATION
  Report Type: Spontaneous
  Country: US (occurrence: US)
  Receive Date: 20140312
  Receipt Date: 20140312
  Transmission Date: 20141002
  Serious: No
  Sender: FDA-Public Use
  Company Number: US-009507513-2012SP036868

PATIENT
  Age: 8 Year
  Sex: Male
  Weight: 27.22 kg

DRUGS (3)
  1. CLARITIN CHEWABLE TABLETS [Suspect]
     Indication: HYPERSENSITIVITY
     Dosage: UNK UNK, PRN
     Route: 048
  2. CLARITIN CHEWABLE TABLETS [Suspect]
     Dosage: 5 MG, QAM
     Route: 048
     Dates: start: 20120517
  3. CLARITIN CHEWABLE TABLETS [Suspect]
     Dosage: 10 MG, ONCE
     Route: 048
     Dates: start: 20120517

REACTIONS (1)
  - Overdose [Unknown]
